FAERS Safety Report 4662081-X (Version None)
Quarter: 2005Q2

REPORT INFORMATION
  Report Type: 
  Country: None (occurrence: None)
  Receive Date: 20050512
  Receipt Date: 20050428
  Transmission Date: 20051028
  Serious: Yes (Hospitalization)
  Sender: FDA-Public Use
  Company Number: 2005BI008632

PATIENT
  Age: 65 Year
  Sex: Female

DRUGS (7)
  1. AVONEX [Suspect]
     Indication: MULTIPLE SCLEROSIS
     Dosage: 30 UG;QW;IM
     Route: 030
     Dates: start: 20040629
  2. NEURONTIN [Concomitant]
  3. TEGRETOL [Concomitant]
  4. NORVASC [Concomitant]
  5. INDERAL [Concomitant]
  6. DITROPAN [Concomitant]
  7. ACYCLOVIR [Concomitant]

REACTIONS (1)
  - LOSS OF CONTROL OF LEGS [None]
